FAERS Safety Report 12834173 (Version 1)
Quarter: 2016Q4

REPORT INFORMATION
  Report Type: Spontaneous
  Country: ES (occurrence: ES)
  Receive Date: 20161010
  Receipt Date: 20161010
  Transmission Date: 20170207
  Serious: Yes (Life-Threatening, Hospitalization)
  Sender: FDA-Public Use
  Company Number: ES-BRISTOL-MYERS SQUIBB COMPANY-BMS-2016-082264

PATIENT
  Age: 40 Year
  Sex: Male

DRUGS (2)
  1. AZACTAM [Suspect]
     Active Substance: AZTREONAM
     Indication: SEPSIS
     Dosage: 1 G, Q8H
     Route: 042
     Dates: start: 20160928
  2. AZACTAM [Suspect]
     Active Substance: AZTREONAM
     Dosage: 2 G, Q8H
     Route: 042
     Dates: start: 20160928

REACTIONS (1)
  - General physical health deterioration [Unknown]
